FAERS Safety Report 15182742 (Version 1)
Quarter: 2018Q3

REPORT INFORMATION
  Report Type: Spontaneous
  Country: BY (occurrence: BY)
  Receive Date: 20180723
  Receipt Date: 20180723
  Transmission Date: 20181010
  Serious: Yes (Other)
  Sender: FDA-Public Use
  Company Number: BY-009507513-1807BLR007088

PATIENT
  Age: 64 Year
  Sex: Male
  Weight: 83.6 kg

DRUGS (11)
  1. LINEZOLID. [Suspect]
     Active Substance: LINEZOLID
     Indication: TUBERCULOSIS
     Dosage: 600 (UNIT UNKNOWN), QD
     Route: 048
     Dates: start: 20170428, end: 20180612
  2. PYRIDOXINE [Concomitant]
     Active Substance: PYRIDOXINE
     Dosage: 50 MG, UNK
     Dates: start: 20170301, end: 20180612
  3. ZOPICLONE [Concomitant]
     Active Substance: ZOPICLONE
     Dosage: 7.5 MG, UNK
     Dates: start: 20170814, end: 20180612
  4. IMIPENEM AND CILASTATIN [Suspect]
     Active Substance: CILASTATIN SODIUM\IMIPENEM
     Indication: TUBERCULOSIS
     Dosage: 2000 (UNIT UNKNOWN), QD
     Route: 042
     Dates: start: 20170428, end: 20180612
  5. MOXIFLOXACIN. [Suspect]
     Active Substance: MOXIFLOXACIN
     Indication: TUBERCULOSIS
     Dosage: 400 (UNIT UNKNOWN), QD
     Route: 048
     Dates: start: 20170428, end: 20180612
  6. AMOXICILLIN (+) CLAVULANATE POTASSIUM [Suspect]
     Active Substance: AMOXICILLIN\CLAVULANATE POTASSIUM
     Indication: TUBERCULOSIS
     Dosage: 2500 (UNIT UNKNOWN), QD
     Route: 048
     Dates: start: 20170428, end: 20180612
  7. CLOFAZIMINE [Suspect]
     Active Substance: CLOFAZIMINE
     Indication: TUBERCULOSIS
     Dosage: 100 (UNIT UNKNOWN), QD
     Route: 048
     Dates: start: 20170628, end: 20180612
  8. DICLOFENAC [Suspect]
     Active Substance: DICLOFENAC
     Indication: HEADACHE
     Dosage: 3?4 TABLETS, QD
  9. TAMSULOZIN [Concomitant]
     Dosage: UNK
     Dates: start: 20180413, end: 20180612
  10. DELAMANID [Suspect]
     Active Substance: DELAMANID
     Indication: TUBERCULOSIS
     Dosage: 200 (UNITS UNKNOWN), QD
     Route: 048
     Dates: start: 20170428, end: 20180612
  11. ACETAMINOPHEN. [Suspect]
     Active Substance: ACETAMINOPHEN
     Indication: HEADACHE
     Dosage: 3?4 TABLETS, QD

REACTIONS (1)
  - Drug-induced liver injury [Not Recovered/Not Resolved]

NARRATIVE: CASE EVENT DATE: 20180612
